FAERS Safety Report 24307064 (Version 1)
Quarter: 2024Q3

REPORT INFORMATION
  Report Type: Spontaneous
  Country: US (occurrence: None)
  Receive Date: 20240910
  Receipt Date: 20240910
  Transmission Date: 20241017
  Serious: Yes (Hospitalization)
  Sender: Public
  Company Number: None

PATIENT
  Age: 50 Year
  Sex: Female

DRUGS (1)
  1. TYMLOS [Suspect]
     Active Substance: ABALOPARATIDE
     Indication: Ankylosing spondylitis
     Dosage: OTHER STRENGTH : 3120MCG/1.56ML;?FREQUENCY : DAILY;?
     Route: 058

REACTIONS (2)
  - Seizure [None]
  - Therapy interrupted [None]
